FAERS Safety Report 22387150 (Version 1)
Quarter: 2023Q2

REPORT INFORMATION
  Report Type: Spontaneous
  Country: GB (occurrence: GB)
  Receive Date: 20230531
  Receipt Date: 20230531
  Transmission Date: 20230721
  Serious: Yes (Other)
  Sender: FDA-Public Use
  Company Number: GB-MHRA-TPP36303610C9616180YC1684774730376

PATIENT
  Age: 83 Year
  Sex: Female
  Weight: 48 kg

DRUGS (1)
  1. ALENDRONIC ACID [Suspect]
     Active Substance: ALENDRONIC ACID
     Indication: Ill-defined disorder
     Dosage: UNK
     Route: 065
     Dates: start: 20230522

REACTIONS (1)
  - Product origin unknown [Recovered/Resolved]

NARRATIVE: CASE EVENT DATE: 20230522
